FAERS Safety Report 9285393 (Version 1)
Quarter: 2013Q2

REPORT INFORMATION
  Report Type: Spontaneous
  Country: US (occurrence: US)
  Receive Date: 20130513
  Receipt Date: 20130513
  Transmission Date: 20140414
  Serious: No
  Sender: FDA-Public Use
  Company Number: US-PFIZER INC-2013145245

PATIENT
  Age: 67 Year
  Sex: Female

DRUGS (2)
  1. LYRICA [Suspect]
     Indication: GLOSSODYNIA
     Dosage: 50 MG, UNK
  2. LYRICA [Suspect]
     Dosage: 200 MG, 1X/DAY

REACTIONS (2)
  - Fibromyalgia [Unknown]
  - Off label use [Unknown]
